FAERS Safety Report 9776988 (Version 2)
Quarter: 2014Q1

REPORT INFORMATION
  Report Type: Report from Study
  Country: CA (occurrence: CA)
  Receive Date: 20131221
  Receipt Date: 20140110
  Transmission Date: 20141002
  Serious: Yes (Hospitalization, Other)
  Sender: FDA-Public Use
  Company Number: CA-ROCHE-1320183

PATIENT
  Age: 57 Year
  Sex: Female

DRUGS (11)
  1. RITUXAN [Suspect]
     Indication: RHEUMATOID ARTHRITIS
     Dosage: FREQUENCY:  DAY 1 AND DAY 15?LAST DOSE OF RITUXIMAB WAS RECEIVED ON 18/MAR/2013
     Route: 042
     Dates: start: 20130304
  2. TYLENOL #1 (CANADA) [Concomitant]
     Indication: PREMEDICATION
     Route: 048
     Dates: start: 20130304
  3. BENADRYL (CANADA) [Concomitant]
     Indication: PREMEDICATION
     Route: 048
     Dates: start: 20130304
  4. SOLU-MEDROL [Concomitant]
     Indication: PREMEDICATION
     Route: 042
     Dates: start: 20130304
  5. METHOTREXATE [Concomitant]
  6. PLAQUENIL [Concomitant]
  7. METFORMIN [Concomitant]
     Route: 065
  8. SYNTHROID [Concomitant]
  9. AMLODIPINE [Concomitant]
  10. CALCIUM GLUCONATE [Concomitant]
  11. NAPROXEN [Concomitant]
     Route: 065

REACTIONS (7)
  - Road traffic accident [Unknown]
  - Pelvic fracture [Unknown]
  - Eye haemorrhage [Unknown]
  - Kidney infection [Unknown]
  - Fatigue [Unknown]
  - Arthralgia [Unknown]
  - Malaise [Unknown]
